FAERS Safety Report 9437509 (Version 2)
Quarter: 2013Q3

REPORT INFORMATION
  Report Type: Spontaneous
  Country: SE (occurrence: None)
  Receive Date: 20130731
  Receipt Date: 20130812
  Transmission Date: 20140515
  Serious: Yes (Death, Hospitalization)
  Sender: FDA-Public Use
  Company Number: AUR-APL-2013-06254

PATIENT
  Age: 68 Year
  Sex: Male

DRUGS (6)
  1. AMLODIPINE [Suspect]
     Indication: PRODUCT USED FOR UNKNOWN INDICATION
  2. METOPROLOL [Suspect]
     Indication: PRODUCT USED FOR UNKNOWN INDICATION
  3. RAMIPRIL [Suspect]
     Indication: PRODUCT USED FOR UNKNOWN INDICATION
  4. SUSCARD [Suspect]
     Indication: PRODUCT USED FOR UNKNOWN INDICATION
  5. NOVOMIX [Suspect]
     Indication: TYPE 2 DIABETES MELLITUS
  6. ACETYLSALICYCLIC ACID (ACETYLSALICYCLIC ACID) [Concomitant]

REACTIONS (7)
  - Pneumonia [None]
  - Syncope [None]
  - Snoring [None]
  - Sudden death [None]
  - Arrhythmia [None]
  - Fatigue [None]
  - Loss of consciousness [None]
